FAERS Safety Report 10081929 (Version 1)
Quarter: 2014Q2

REPORT INFORMATION
  Report Type: Spontaneous
  Country: FR (occurrence: FR)
  Receive Date: 20140416
  Receipt Date: 20140416
  Transmission Date: 20141212
  Serious: Yes (Hospitalization)
  Sender: FDA-Public Use
  Company Number: FR-GLAXOSMITHKLINE-B0984741A

PATIENT
  Age: 29 Year
  Sex: Male

DRUGS (3)
  1. LAMICTAL [Suspect]
     Indication: EPILEPSY
     Route: 048
     Dates: start: 201211, end: 20130208
  2. DEPAKINE [Suspect]
     Indication: EPILEPSY
     Route: 065
     Dates: start: 201211, end: 20130208
  3. DOLIPRANE [Concomitant]
     Route: 065

REACTIONS (21)
  - Drug reaction with eosinophilia and systemic symptoms [Recovered/Resolved]
  - Pyrexia [Recovered/Resolved]
  - Chills [Recovered/Resolved]
  - Hyperhidrosis [Recovered/Resolved]
  - Asthenia [Recovered/Resolved]
  - Weight decreased [Recovered/Resolved]
  - Lymphadenopathy [Recovered/Resolved]
  - Chest pain [Recovered/Resolved]
  - Rash [Recovered/Resolved]
  - Face oedema [Recovered/Resolved]
  - Oedema peripheral [Recovered/Resolved]
  - Inflammation [Recovered/Resolved]
  - Toxic skin eruption [Recovered/Resolved]
  - Liver disorder [Recovered/Resolved]
  - Thrombocytopenia [Recovered/Resolved]
  - Enanthema [Recovered/Resolved]
  - Lymphocytosis [Recovered/Resolved]
  - Tachycardia [Unknown]
  - Pericardial effusion [Not Recovered/Not Resolved]
  - Cardiac disorder [Unknown]
  - Myocarditis [Unknown]
